FAERS Safety Report 11559272 (Version 1)
Quarter: 2015Q3

REPORT INFORMATION
  Report Type: Report from Study
  Country: BR (occurrence: BR)
  Receive Date: 20150928
  Receipt Date: 20150928
  Transmission Date: 20151125
  Serious: Yes (Other)
  Sender: FDA-Public Use
  Company Number: PHHY2015BR116379

PATIENT
  Sex: Female
  Weight: 80 kg

DRUGS (1)
  1. DIOVAN HCT [Suspect]
     Active Substance: HYDROCHLOROTHIAZIDE\VALSARTAN
     Indication: HYPERTENSION
     Dosage: 1 DF(VALSARTAN 160 MG, HYDROCHLOROTHIAZIDE 12.5 MG), QD IN THE MORNING
     Route: 065

REACTIONS (3)
  - Breast cancer [Unknown]
  - Breast discharge [Unknown]
  - Hearing impaired [Unknown]
